FAERS Safety Report 22317906 (Version 1)
Quarter: 2023Q2

REPORT INFORMATION
  Report Type: Spontaneous
  Country: US (occurrence: US)
  Receive Date: 20230515
  Receipt Date: 20230515
  Transmission Date: 20230721
  Serious: No
  Sender: FDA-Public Use
  Company Number: US-Accord-301103

PATIENT
  Sex: Female
  Weight: 61.23 kg

DRUGS (2)
  1. LEVOTHYROXINE [Suspect]
     Active Substance: LEVOTHYROXINE
     Indication: Thyroid disorder
     Dosage: 137MCG, 1/2 TABLET, ORAL, DAILY
     Route: 048
     Dates: start: 202302
  2. VITAMINS NOS [Concomitant]
     Active Substance: VITAMINS

REACTIONS (6)
  - Product substitution issue [Unknown]
  - Drug ineffective [Unknown]
  - Product size issue [Unknown]
  - Recalled product [Unknown]
  - Product physical consistency issue [Unknown]
  - Incorrect dose administered [Unknown]
